FAERS Safety Report 17463806 (Version 1)
Quarter: 2020Q1

REPORT INFORMATION
  Report Type: Report from Study
  Country: US (occurrence: US)
  Receive Date: 20200226
  Receipt Date: 20200226
  Transmission Date: 20200409
  Serious: Yes (Hospitalization, Other)
  Sender: FDA-Public Use
  Company Number: US-RETROPHIN, INC.-2020RTN00022

PATIENT
  Age: 4 Month
  Sex: Female

DRUGS (8)
  1. ALDACTAZIDE [Concomitant]
     Active Substance: HYDROCHLOROTHIAZIDE\SPIRONOLACTONE
  2. HYDROCORTISONE. [Concomitant]
     Active Substance: HYDROCORTISONE
  3. OMEPRAZOLE. [Concomitant]
     Active Substance: OMEPRAZOLE
  4. CHOLIC ACID [Suspect]
     Active Substance: CHOLIC ACID
     Indication: SMITH-LEMLI-OPITZ SYNDROME
     Dosage: 50 MG, 1X/DAY
     Dates: start: 20191225, end: 20200206
  5. CHOLESTEROL SUPPLEMENT [Concomitant]
  6. AMLODIPINE [Concomitant]
     Active Substance: AMLODIPINE BESYLATE
  7. CAPTOPRIL. [Concomitant]
     Active Substance: CAPTOPRIL
  8. CEFTRIAXONE. [Concomitant]
     Active Substance: CEFTRIAXONE

REACTIONS (9)
  - Nodular regenerative hyperplasia [Unknown]
  - Coagulopathy [Not Recovered/Not Resolved]
  - Alanine aminotransferase increased [Not Recovered/Not Resolved]
  - Cholestasis [Not Recovered/Not Resolved]
  - Ascites [Unknown]
  - Mental status changes [Unknown]
  - Acute on chronic liver failure [Not Recovered/Not Resolved]
  - Focal nodular hyperplasia [Unknown]
  - Alpha 1 foetoprotein increased [Unknown]

NARRATIVE: CASE EVENT DATE: 20200205
